FAERS Safety Report 20769618 (Version 2)
Quarter: 2022Q2

REPORT INFORMATION
  Report Type: Spontaneous
  Country: SV (occurrence: SV)
  Receive Date: 20220429
  Receipt Date: 20220505
  Transmission Date: 20220721
  Serious: Yes (Other)
  Sender: FDA-Public Use
  Company Number: SV-MIMS-CHDWMC-140

PATIENT
  Age: 36 Year
  Sex: Female

DRUGS (1)
  1. ADVANCE WHITE EXTREME WHITENING TARTAR CONTROL [Suspect]
     Active Substance: SODIUM FLUORIDE
     Indication: Product used for unknown indication
     Dosage: OCCASIONALLY USE
     Route: 004
     Dates: start: 202203

REACTIONS (11)
  - Loss of consciousness [Unknown]
  - Dyspnoea [Unknown]
  - Heart rate increased [Unknown]
  - Cheilitis [Not Recovered/Not Resolved]
  - Pain [Not Recovered/Not Resolved]
  - Noninfective gingivitis [Not Recovered/Not Resolved]
  - Gingival bleeding [Not Recovered/Not Resolved]
  - Stomatitis [Unknown]
  - Paraesthesia oral [Unknown]
  - Hypoaesthesia [Not Recovered/Not Resolved]
  - Ageusia [Not Recovered/Not Resolved]

NARRATIVE: CASE EVENT DATE: 20220412
